FAERS Safety Report 8155076-5 (Version None)
Quarter: 2012Q1

REPORT INFORMATION
  Report Type: 
  Country: None (occurrence: None)
  Receive Date: 20120221
  Receipt Date: 20120215
  Transmission Date: 20120608
  Serious: No
  Sender: FDA-Public Use
  Company Number: US-PFIZER INC-2012007597

PATIENT
  Sex: Female
  Weight: 77 kg

DRUGS (6)
  1. PERCOCET [Concomitant]
     Indication: ARTHRITIS
     Dosage: UNK
  2. LYRICA [Suspect]
     Indication: FIBROMYALGIA
     Dosage: 150 MG, UNK
     Route: 048
  3. FLUOXETINE HYDROCHLORIDE [Concomitant]
     Indication: MAJOR DEPRESSION
     Dosage: 40 MG, DAILY
  4. CHANTIX [Suspect]
     Indication: SMOKING CESSATION THERAPY
     Dosage: 0.5 MG, 1X/DAY
     Route: 048
     Dates: start: 20111118
  5. LYRICA [Suspect]
     Dosage: UNK, 1CAPSULE
     Route: 048
  6. CHANTIX [Suspect]
     Dosage: UNK
     Route: 048
     Dates: end: 20120101

REACTIONS (4)
  - NAIL DISCOLOURATION [None]
  - HEARING IMPAIRED [None]
  - GASTROINTESTINAL DISORDER [None]
  - DIARRHOEA [None]
